FAERS Safety Report 6432944-3 (Version None)
Quarter: 2009Q4

REPORT INFORMATION
  Report Type: 
  Country: None (occurrence: None)
  Receive Date: 20091109
  Receipt Date: 20091030
  Transmission Date: 20100525
  Serious: Yes (Other)
  Sender: FDA-Public Use
  Company Number: CO-ALLERGAN-0910918US

PATIENT
  Age: 15 Year
  Sex: Male

DRUGS (2)
  1. BOTOX [Suspect]
     Indication: MUSCLE SPASTICITY
     Dosage: 300 UNITS, SINGLE
     Route: 030
     Dates: start: 20090521, end: 20090521
  2. BOTOX [Suspect]
     Dosage: 100 UNITS, SINGLE
     Route: 030

REACTIONS (3)
  - ASTHENIA [None]
  - DYSPHAGIA [None]
  - MUSCULAR WEAKNESS [None]
